FAERS Safety Report 7309956-0 (Version None)
Quarter: 2011Q1

REPORT INFORMATION
  Report Type: 
  Country: None (occurrence: None)
  Receive Date: 20110210
  Receipt Date: 20110120
  Transmission Date: 20110831
  Serious: Yes (Death)
  Sender: FDA-Public Use
  Company Number: AE11-012-2

PATIENT
  Age: 33 Year
  Sex: Female

DRUGS (9)
  1. ROSUVASTATIN [Suspect]
  2. LORCET (ACETAMINOPHEN/HYDROCODONE) [Suspect]
  3. ROSIGLITAZONE [Suspect]
  4. ARIPIPRAZOLE [Suspect]
  5. TRAZODONE [Suspect]
  6. DICLOFENAC [Suspect]
  7. LISINOPRIL [Suspect]
  8. OXYCODONE [Suspect]
  9. NORTRIPTYLINE [Suspect]

REACTIONS (2)
  - CARDIO-RESPIRATORY ARREST [None]
  - MULTIPLE DRUG OVERDOSE INTENTIONAL [None]
